FAERS Safety Report 8971606 (Version 1)
Quarter: 2012Q4

REPORT INFORMATION
  Report Type: 
  Country: US (occurrence: US)
  Receive Date: 20121217
  Receipt Date: 20121217
  Transmission Date: 20130627
  Serious: No
  Sender: FDA-Public Use
  Company Number: US-VERTEX PHARMACEUTICALS INC.-AE-2012-011135

PATIENT
  Age: 44 Year
  Sex: Male

DRUGS (1)
  1. VX-770 [Suspect]
     Indication: CYSTIC FIBROSIS
     Dosage: 150 mg, bid
     Dates: start: 20120329

REACTIONS (3)
  - Weight increased [Unknown]
  - Constipation [Recovered/Resolved]
  - Drug ineffective [Unknown]
